FAERS Safety Report 6393227-3 (Version None)
Quarter: 2009Q4

REPORT INFORMATION
  Report Type: 
  Country: None (occurrence: None)
  Receive Date: 20091008
  Receipt Date: 20090928
  Transmission Date: 20100525
  Serious: Yes (Hospitalization)
  Sender: FDA-Public Use
  Company Number: US-BAYER-200934502NA

PATIENT
  Sex: Female

DRUGS (1)
  1. MIRENA [Suspect]
     Indication: DRUG USE FOR UNKNOWN INDICATION
     Dosage: CONTINUOUS
     Route: 015

REACTIONS (6)
  - CHILLS [None]
  - COMPUTERISED TOMOGRAM ABNORMAL [None]
  - FALLOPIAN TUBE ABSCESS [None]
  - PELVIC PAIN [None]
  - PYREXIA [None]
  - UTERINE RUPTURE [None]
